FAERS Safety Report 25634562 (Version 2)
Quarter: 2025Q3

REPORT INFORMATION
  Report Type: Spontaneous
  Country: EU (occurrence: EU)
  Receive Date: 20250801
  Receipt Date: 20250812
  Transmission Date: 20251021
  Serious: Yes (Hospitalization)
  Sender: BRISTOL-MYERS SQUIBB COMPANY
  Company Number: EU-JNJFOC-20250733353

PATIENT
  Age: 73 Year
  Sex: Male
  Weight: 73.3 kg

DRUGS (3)
  1. LENALIDOMIDE [Suspect]
     Active Substance: LENALIDOMIDE
     Indication: Plasma cell myeloma
     Route: 048
     Dates: end: 20250728
  2. TOLODODEKIN ALFA [Suspect]
     Active Substance: TOLODODEKIN ALFA
     Indication: Plasma cell myeloma
     Route: 058
     Dates: start: 20190806, end: 20250728
  3. PREDNISONE [Concomitant]
     Active Substance: PREDNISONE
     Indication: Product used for unknown indication
     Dates: start: 20240729

REACTIONS (3)
  - Lumbar spinal stenosis [Recovered/Resolved]
  - Spinal claudication [Recovered/Resolved]
  - Lumbar radiculopathy [Recovered/Resolved]

NARRATIVE: CASE EVENT DATE: 20250716
